FAERS Safety Report 8158055-7 (Version None)
Quarter: 2012Q1

REPORT INFORMATION
  Report Type: 
  Country: None (occurrence: None)
  Receive Date: 20120222
  Receipt Date: 20120215
  Transmission Date: 20120608
  Serious: Yes (Other)
  Sender: FDA-Public Use
  Company Number: PHHY2011IE78961

PATIENT
  Sex: Female

DRUGS (11)
  1. ACETAMINOPHEN [Concomitant]
     Dosage: 2 PRN
  2. ARICEPT [Concomitant]
     Dosage: 10 MG, QD
  3. LEVOTHYROXINE SODIUM [Concomitant]
     Dosage: 125 UG, QD
  4. DILTIAZEM HCL [Concomitant]
     Dosage: 120 MG, QD
  5. LANTUS [Concomitant]
     Dosage: 10 UNITS SC BID
  6. ASPIRIN [Concomitant]
     Dosage: 75 MG, QD
  7. LIPITOR [Concomitant]
     Dosage: 10 MG, QN
  8. SPIRIVA [Concomitant]
     Dosage: 18 UG, 2 PUFFS QD
  9. MOTILIUM [Concomitant]
     Dosage: 10 MG, TID
  10. ONBREZ [Suspect]
     Indication: CHRONIC OBSTRUCTIVE PULMONARY DISEASE
     Dosage: 2 PUFFS ONCE PER DAY
  11. PRILOSEC [Concomitant]
     Dosage: 20 MG, QD

REACTIONS (3)
  - ATRIAL FIBRILLATION [None]
  - FEMORAL NECK FRACTURE [None]
  - FALL [None]
